FAERS Safety Report 6173920-8 (Version None)
Quarter: 2009Q2

REPORT INFORMATION
  Report Type: 
  Country: None (occurrence: None)
  Receive Date: 20090429
  Receipt Date: 20090429
  Transmission Date: 20091009
  Serious: Yes (Hospitalization, Other)
  Sender: FDA-Public Use
  Company Number: None

PATIENT
  Sex: Male
  Weight: 99.7913 kg

DRUGS (2)
  1. DIGOXIN [Suspect]
     Indication: CARDIAC DISORDER
     Dosage: 1.5 DAILY PO MORE THAN 5 YEARS
     Route: 048
     Dates: start: 20040101, end: 20090401
  2. DIGOXIN [Concomitant]

REACTIONS (6)
  - CARDIAC FAILURE [None]
  - DIZZINESS [None]
  - DYSPNOEA [None]
  - FLUID RETENTION [None]
  - HEART RATE DECREASED [None]
  - PRODUCT QUALITY ISSUE [None]
